FAERS Safety Report 25797180 (Version 2)
Quarter: 2025Q3

REPORT INFORMATION
  Report Type: Spontaneous
  Country: US (occurrence: US)
  Receive Date: 20250912
  Receipt Date: 20250919
  Transmission Date: 20251021
  Serious: Yes (Hospitalization, Disabling, Other)
  Sender: TORRENT PHARMA INC.
  Company Number: US-TORRENT-00014505

PATIENT
  Age: 56 Year
  Sex: Female

DRUGS (3)
  1. LAMOTRIGINE [Suspect]
     Active Substance: LAMOTRIGINE
     Indication: Product used for unknown indication
     Dosage: 150 MG BID, EMPTY MEDICATION BOTTLES
     Route: 065
  2. GABAPENTIN [Concomitant]
     Active Substance: GABAPENTIN
     Indication: Product used for unknown indication
     Route: 065
  3. LEVETIRACETAM [Concomitant]
     Active Substance: LEVETIRACETAM
     Indication: Product used for unknown indication
     Route: 065

REACTIONS (10)
  - Toxicity to various agents [Unknown]
  - Seizure [Unknown]
  - Encephalopathy [Recovered/Resolved]
  - Intentional overdose [Unknown]
  - Blister [Unknown]
  - Mydriasis [Unknown]
  - Eye movement disorder [Recovered/Resolved]
  - Hallucination, visual [Recovered/Resolved]
  - Ear disorder [Unknown]
  - Gait inability [Recovered/Resolved]
